FAERS Safety Report 5781601-5 (Version None)
Quarter: 2008Q2

REPORT INFORMATION
  Report Type: 
  Country: None (occurrence: None)
  Receive Date: 20080623
  Receipt Date: 20080616
  Transmission Date: 20081010
  Serious: Yes (Other)
  Sender: FDA-Public Use
  Company Number: US-TEVA-173008USA

PATIENT
  Age: 31 Year
  Sex: Female

DRUGS (12)
  1. PHENYLEPHRINE HYDROCHLORIDE INJECTION, USP 1% 1 ML SDV + 5 ML SDV [Suspect]
     Route: 041
  2. ATROPINE [Suspect]
     Indication: HYPOTENSION
     Dosage: TOTAL DOSE OF 0.8 MG
     Route: 042
  3. ATROPINE [Suspect]
     Indication: SINUS BRADYCARDIA
  4. EPHEDRINE SUL CAP [Suspect]
     Indication: HYPOTENSION
     Dosage: (TOTAL 50 MG)
     Route: 042
  5. EPHEDRINE SUL CAP [Suspect]
     Indication: SINUS BRADYCARDIA
  6. BUPIVACAINE [Concomitant]
     Indication: SPINAL ANAESTHESIA
  7. FENTANYL-100 [Concomitant]
     Indication: SPINAL ANAESTHESIA
     Dosage: 10 MICROGRAM
  8. MORPHINE [Concomitant]
     Indication: SPINAL ANAESTHESIA
     Dosage: 0.2 MG
  9. PROPOFOL [Concomitant]
  10. SUXAMETHONIUM CHLORIDE [Concomitant]
  11. NITROUS OXIDE W/ OXYGEN [Concomitant]
     Indication: GENERAL ANAESTHESIA
  12. SEVOFLURANE [Concomitant]
     Indication: GENERAL ANAESTHESIA

REACTIONS (1)
  - STRESS CARDIOMYOPATHY [None]
